FAERS Safety Report 6010332-1 (Version None)
Quarter: 2008Q4

REPORT INFORMATION
  Report Type: 
  Country: None (occurrence: None)
  Receive Date: 20081218
  Receipt Date: 20080814
  Transmission Date: 20090506
  Serious: Yes (Other)
  Sender: FDA-Public Use
  Company Number: A0741364A

PATIENT
  Sex: Female

DRUGS (5)
  1. FLONASE [Suspect]
     Indication: DRUG USE FOR UNKNOWN INDICATION
     Dosage: 1SPR PER DAY
     Route: 045
     Dates: start: 20080615, end: 20080622
  2. PREDNISONE TAB [Concomitant]
  3. BLOOD PRESSURE MEDICATION [Concomitant]
  4. UNSPECIFIED INHALER [Concomitant]
     Indication: ASTHMA
  5. LEVOXYL [Concomitant]

REACTIONS (4)
  - AGEUSIA [None]
  - ANOSMIA [None]
  - NASAL CONGESTION [None]
  - RHINORRHOEA [None]
